FAERS Safety Report 8828318 (Version 5)
Quarter: 2013Q3

REPORT INFORMATION
  Report Type: Report from Study
  Country: JP (occurrence: JP)
  Receive Date: 20121005
  Receipt Date: 20130805
  Transmission Date: 20140515
  Serious: Yes (Hospitalization)
  Sender: FDA-Public Use
  Company Number: JP-ABBOTT-12P-087-0988937-00

PATIENT
  Age: 45 Year
  Sex: Male

DRUGS (11)
  1. LIPACREON [Suspect]
     Indication: PANCREATIC INSUFFICIENCY
     Dosage: 1800MG DAILY
     Route: 048
     Dates: start: 20120206, end: 20120706
  2. LIPACREON [Suspect]
     Dosage: 3600MG DAILY
     Dates: start: 20120707
  3. LANSOPRAZOLE [Concomitant]
     Indication: PANCREATIC INSUFFICIENCY
     Route: 048
  4. POLAPREZINC [Concomitant]
     Indication: PRODUCT USED FOR UNKNOWN INDICATION
     Dosage: 150MG DAILY
     Route: 048
     Dates: start: 20120206
  5. DRIED THYROID [Concomitant]
     Indication: PRODUCT USED FOR UNKNOWN INDICATION
     Dosage: 200MCG DAILY
     Route: 048
     Dates: start: 20111029
  6. MEROPENEM NP [Concomitant]
     Indication: PERITONITIS
     Dosage: 1.5G DAILY
     Route: 050
     Dates: start: 20120208, end: 20120213
  7. MEROPENEM NP [Concomitant]
     Indication: ABDOMINAL ABSCESS
     Dosage: 1.5G DAILY
     Dates: start: 20120227, end: 20120229
  8. FAROPENEM SODIUM [Concomitant]
     Indication: ABDOMINAL ABSCESS
     Dosage: 600MG DAILY
     Route: 048
     Dates: start: 20120217, end: 20120220
  9. FAROPENEM SODIUM [Concomitant]
     Dosage: 600MG DAILY
     Dates: start: 20120224, end: 20120227
  10. BIAPENEM [Concomitant]
     Indication: ABDOMINAL ABSCESS
     Dosage: 1.2G DAILY
     Dates: start: 20120301, end: 20120308
  11. BIAPENEM [Concomitant]
     Indication: ABDOMINAL WOUND DEHISCENCE

REACTIONS (5)
  - Chemical peritonitis [Recovered/Resolved]
  - Drug-induced liver injury [Recovered/Resolved]
  - Abdominal wound dehiscence [Recovered/Resolved]
  - Abdominal abscess [Recovered/Resolved]
  - Abnormal faeces [Not Recovered/Not Resolved]
